FAERS Safety Report 5661988-4 (Version None)
Quarter: 2008Q2

REPORT INFORMATION
  Report Type: 
  Country: None (occurrence: None)
  Receive Date: 20080201
  Receipt Date: 20070628
  Transmission Date: 20081010
  Serious: Yes (Other)
  Sender: FDA-Public Use
  Company Number: 504893

PATIENT
  Age: 41 Year
  Sex: Male

DRUGS (13)
  1. RIBAVIRIN [Suspect]
     Indication: HEPATITIS C VIRUS
  2. INTERFERON (INTERFERON) [Suspect]
     Indication: HEPATITIS C VIRUS
  3. NEUPOGEN [Suspect]
     Indication: NEUTROPENIA
     Dosage: 300 MCG 2 PER 1 WEEK
  4. LAMOTRIGINE [Suspect]
     Indication: DRUG THERAPY
     Dosage: 50 MG 1 PER DAY
  5. GABAPENTIN [Concomitant]
  6. VENLAFAXINE HCL [Concomitant]
  7. QUETIAPINE FUMARATE [Concomitant]
  8. OLANZAPINE [Concomitant]
  9. ALBUTEROL [Concomitant]
  10. CODEINE SUL TAB [Concomitant]
  11. HYDROCODONE/PARACETAMOL (HYDROCODONE BITARTRATE/PARACETAMOL) [Concomitant]
  12. MIRTAZAPINE [Concomitant]
  13. RABEPRAZOLE (RABEPRAZOLE SODIUM) [Concomitant]

REACTIONS (4)
  - ANAEMIA [None]
  - DEPRESSION [None]
  - NEUTROPENIA [None]
  - STEVENS-JOHNSON SYNDROME [None]
